FAERS Safety Report 5011497-0 (Version None)
Quarter: 2006Q2

REPORT INFORMATION
  Report Type: 
  Country: None (occurrence: None)
  Receive Date: 20060524
  Receipt Date: 20060517
  Transmission Date: 20061013
  Serious: Yes (Hospitalization)
  Sender: FDA-Public Use
  Company Number: HQWYE380317MAY06

PATIENT
  Age: 58 Year
  Sex: Female

DRUGS (3)
  1. VENLAFAXINE HCL [Suspect]
     Indication: DEPRESSION
     Dosage: 75 MG 1X PER 1 DAY ORAL
     Route: 048
     Dates: start: 20051208, end: 20060508
  2. LENDORM [Concomitant]
  3. LENDORM [Concomitant]

REACTIONS (1)
  - LARGE INTESTINE CARCINOMA [None]
